FAERS Safety Report 8074344-9 (Version None)
Quarter: 2012Q1

REPORT INFORMATION
  Report Type: 
  Country: None (occurrence: None)
  Receive Date: 20120126
  Receipt Date: 20120125
  Transmission Date: 20120608
  Serious: Yes (Hospitalization)
  Sender: FDA-Public Use
  Company Number: US-GLAXOSMITHKLINE-A0805973A

PATIENT
  Age: 47 Year
  Sex: Female
  Weight: 81.4 kg

DRUGS (16)
  1. CLORAZEPATE DIPOTASSIUM [Concomitant]
  2. ACIPHEX [Concomitant]
  3. ZELNORM [Concomitant]
  4. BUPROPION HYDROCHLORIDE [Concomitant]
  5. ZANAFLEX [Concomitant]
  6. CELEXA [Concomitant]
  7. VERAPAMIL [Concomitant]
  8. NASACORT [Concomitant]
  9. CLONIDINE [Concomitant]
  10. DIOVAN HCT [Concomitant]
  11. AVANDIA [Suspect]
     Indication: TYPE 2 DIABETES MELLITUS
     Dosage: 8MG PER DAY
     Route: 048
     Dates: start: 20030101, end: 20081231
  12. CLARITIN [Concomitant]
  13. NEURONTIN [Concomitant]
  14. ZONEGRAN [Concomitant]
  15. ZETIA [Concomitant]
  16. GABITRIL [Concomitant]

REACTIONS (5)
  - CEREBROVASCULAR ACCIDENT [None]
  - RESPIRATORY FAILURE [None]
  - NEUROPATHY PERIPHERAL [None]
  - CARDIAC FAILURE CONGESTIVE [None]
  - PAIN [None]
